FAERS Safety Report 12818947 (Version 1)
Quarter: 2016Q4

REPORT INFORMATION
  Report Type: Spontaneous
  Country: US (occurrence: US)
  Receive Date: 20161006
  Receipt Date: 20161006
  Transmission Date: 20170207
  Serious: Yes (Other)
  Sender: FDA-Public Use
  Company Number: US-GLAXOSMITHKLINE-US2016GSK145311

PATIENT
  Age: 50 Year
  Sex: Female

DRUGS (7)
  1. ONFI [Suspect]
     Active Substance: CLOBAZAM
     Indication: EPILEPSY
     Dosage: 5 MG, Z (IN THE MORNING)
     Dates: start: 2013
  2. KEPPRA [Suspect]
     Active Substance: LEVETIRACETAM
     Indication: PRODUCT USED FOR UNKNOWN INDICATION
     Dosage: UNK
     Dates: start: 2013
  3. VIMPAT [Concomitant]
     Active Substance: LACOSAMIDE
     Dosage: UNK
  4. LAMICTAL [Suspect]
     Active Substance: LAMOTRIGINE
     Indication: PRODUCT USED FOR UNKNOWN INDICATION
     Dosage: UNK
  5. LAMOTRIGINE. [Suspect]
     Active Substance: LAMOTRIGINE
     Indication: PRODUCT USED FOR UNKNOWN INDICATION
     Dosage: UNK
  6. ONFI [Suspect]
     Active Substance: CLOBAZAM
     Dosage: 10 MG, Z (AT NIGHT)
  7. CLOBAZAM [Suspect]
     Active Substance: CLOBAZAM
     Indication: PRODUCT USED FOR UNKNOWN INDICATION
     Dosage: UNK

REACTIONS (13)
  - Insomnia [Unknown]
  - Anxiety [Unknown]
  - Gait disturbance [Unknown]
  - Nightmare [Unknown]
  - Irritability [Unknown]
  - Depression [Unknown]
  - Reflexes abnormal [Unknown]
  - Intentional product use issue [Unknown]
  - Depressed mood [Unknown]
  - Drug level increased [Unknown]
  - Seizure [Unknown]
  - Memory impairment [Unknown]
  - Motor dysfunction [Unknown]

NARRATIVE: CASE EVENT DATE: 201207
